FAERS Safety Report 12530543 (Version 1)
Quarter: 2016Q3

REPORT INFORMATION
  Report Type: Spontaneous
  Country: US (occurrence: None)
  Receive Date: 20160705
  Receipt Date: 20160705
  Transmission Date: 20161109
  Serious: Yes (Disabling, Other)
  Sender: FDA-Public Use
  Company Number: None

PATIENT
  Age: 48 Year
  Sex: Female
  Weight: 120.2 kg

DRUGS (6)
  1. BIOTIN [Concomitant]
     Active Substance: BIOTIN
  2. FISH OIL [Concomitant]
     Active Substance: FISH OIL
  3. BYDUREON [Suspect]
     Active Substance: EXENATIDE
     Dosage: 12 INJECTION(S) ONCE WEEKLY INJECTED INTO THE STOMACH
     Dates: start: 20160302, end: 20160413
  4. LISIOPRIL [Concomitant]
  5. OMEPROZOLE [Concomitant]
     Active Substance: OMEPRAZOLE
  6. METFORMIN [Concomitant]
     Active Substance: METFORMIN HYDROCHLORIDE

REACTIONS (16)
  - Malaise [None]
  - Cough [None]
  - Dysphagia [None]
  - Dysphonia [None]
  - Oropharyngeal pain [None]
  - Nodule [None]
  - Diarrhoea [None]
  - Choking [None]
  - Palpitations [None]
  - Injection site pruritus [None]
  - Hyperhidrosis [None]
  - Nausea [None]
  - Headache [None]
  - Dizziness [None]
  - Thyroid neoplasm [None]
  - Swelling [None]

NARRATIVE: CASE EVENT DATE: 20160330
